FAERS Safety Report 16881459 (Version 1)
Quarter: 2019Q4

REPORT INFORMATION
  Report Type: Spontaneous
  Country: US (occurrence: US)
  Receive Date: 20191003
  Receipt Date: 20191003
  Transmission Date: 20200122
  Serious: Yes (Hospitalization)
  Sender: FDA-Public Use
  Company Number: None

PATIENT
  Age: 45 Year
  Sex: Female
  Weight: 61.65 kg

DRUGS (10)
  1. GABAPENTIN. [Concomitant]
     Active Substance: GABAPENTIN
     Dates: start: 20190625, end: 20190625
  2. MAGNESIUM [Concomitant]
     Active Substance: MAGNESIUM
     Dates: start: 20190625, end: 20190625
  3. HEPARIN [Concomitant]
     Active Substance: HEPARIN SODIUM
     Dates: start: 20190625, end: 20190625
  4. CEFAZOLIN [Concomitant]
     Active Substance: CEFAZOLIN
     Dates: start: 20190625, end: 20190625
  5. KETAMINE [Concomitant]
     Active Substance: KETAMINE
     Dates: start: 20190625, end: 20190625
  6. PROPOFOL. [Concomitant]
     Active Substance: PROPOFOL
     Dates: start: 20190625, end: 20190625
  7. MIDAZOLAM [Concomitant]
     Active Substance: MIDAZOLAM HYDROCHLORIDE
     Dates: start: 20190625, end: 20190625
  8. LIDOCAINE. [Suspect]
     Active Substance: LIDOCAINE
     Indication: POSTOPERATIVE ANALGESIA
     Dosage: ?          OTHER FREQUENCY:0.75 MG/MIN;?
     Route: 041
     Dates: start: 20190625, end: 20190626
  9. ACETAMINOPHEN. [Concomitant]
     Active Substance: ACETAMINOPHEN
     Dates: start: 20190625, end: 20190625
  10. CELECOXIB. [Concomitant]
     Active Substance: CELECOXIB
     Dates: start: 20190625, end: 20190625

REACTIONS (1)
  - Diplopia [None]

NARRATIVE: CASE EVENT DATE: 20190625
